FAERS Safety Report 24731555 (Version 1)
Quarter: 2024Q4

REPORT INFORMATION
  Report Type: Spontaneous
  Country: US (occurrence: None)
  Receive Date: 20241212
  Receipt Date: 20241212
  Transmission Date: 20250115
  Serious: Yes (Hospitalization)
  Sender: Public
  Company Number: None

PATIENT
  Age: 35 Year
  Sex: Male
  Weight: 72 kg

DRUGS (3)
  1. QELBREE [Suspect]
     Active Substance: VILOXAZINE HYDROCHLORIDE
     Indication: Attention deficit hyperactivity disorder
     Dosage: OTHER QUANTITY : 2 CAPSULE(S);?FREQUENCY : TWICE A DAY;?
     Route: 048
     Dates: start: 20241120, end: 20241208
  2. ADVIL [Concomitant]
     Active Substance: IBUPROFEN
  3. men^s multivitamin [Concomitant]

REACTIONS (9)
  - Product dose omission in error [None]
  - Migraine [None]
  - Vomiting projectile [None]
  - Product communication issue [None]
  - Malaise [None]
  - Headache [None]
  - Pain [None]
  - Withdrawal syndrome [None]
  - Gastroenteritis [None]

NARRATIVE: CASE EVENT DATE: 20241211
